FAERS Safety Report 4461966-7 (Version None)
Quarter: 2004Q3

REPORT INFORMATION
  Report Type: 
  Country: None (occurrence: None)
  Receive Date: 20040927
  Receipt Date: 20040927
  Transmission Date: 20050211
  Serious: Yes (Hospitalization)
  Sender: FDA-Public Use
  Company Number: None

PATIENT
  Age: 72 Year
  Sex: Male
  Weight: 64 kg

DRUGS (8)
  1. LORAZEPAM [Suspect]
     Indication: CONVULSION
     Dosage: 4 MG ONCE INTRAMUSCULAR
     Route: 030
     Dates: start: 20031221, end: 20031221
  2. VITAMIN E [Concomitant]
  3. FOLIC ACID [Concomitant]
  4. VERAPAMIL [Concomitant]
  5. DILANTIN [Concomitant]
  6. COGENTIN [Concomitant]
  7. SERTRALINE HCL [Concomitant]
  8. HALDOL DECANOATE [Concomitant]

REACTIONS (4)
  - APNOEA [None]
  - DEPRESSED LEVEL OF CONSCIOUSNESS [None]
  - MIOSIS [None]
  - OXYGEN SATURATION DECREASED [None]
